FAERS Safety Report 6388325-4 (Version None)
Quarter: 2009Q4

REPORT INFORMATION
  Report Type: 
  Country: None (occurrence: None)
  Receive Date: 20091005
  Receipt Date: 20090923
  Transmission Date: 20100525
  Serious: Yes (Hospitalization)
  Sender: FDA-Public Use
  Company Number: US-MERCK-0909USA04115

PATIENT
  Age: 72 Year
  Sex: Male

DRUGS (1)
  1. HYDRODIURIL [Suspect]
     Route: 048

REACTIONS (1)
  - GOUT [None]
